FAERS Safety Report 5247276-9 (Version None)
Quarter: 2007Q1

REPORT INFORMATION
  Report Type: 
  Country: None (occurrence: None)
  Receive Date: 20070227
  Receipt Date: 20070213
  Transmission Date: 20070707
  Serious: Yes (Other)
  Sender: FDA-Public Use
  Company Number: PHEH2007US01993

PATIENT
  Age: 64 Year
  Sex: Female

DRUGS (2)
  1. DIOVAN [Suspect]
     Indication: HYPERTENSION
     Dosage: 80 MG TAB, QD
     Route: 048
     Dates: start: 20061101
  2. BLOOD PRESSURE MEDICATION [Concomitant]
     Dates: start: 20070212

REACTIONS (7)
  - AMNESIA [None]
  - FLUSHING [None]
  - HYPERTENSION [None]
  - LOSS OF CONSCIOUSNESS [None]
  - PAIN [None]
  - TRANSIENT ISCHAEMIC ATTACK [None]
  - URINE ODOUR ABNORMAL [None]
